FAERS Safety Report 11127137 (Version 9)
Quarter: 2015Q4

REPORT INFORMATION
  Report Type: Spontaneous
  Country: CA (occurrence: CA)
  Receive Date: 20150521
  Receipt Date: 20151013
  Transmission Date: 20160304
  Serious: Yes (Hospitalization, Other)
  Sender: FDA-Public Use
  Company Number: CA-ROCHE-1581314

PATIENT
  Age: 60 Year
  Sex: Female

DRUGS (10)
  1. XOLAIR [Suspect]
     Active Substance: OMALIZUMAB
     Route: 058
     Dates: start: 20150603
  2. XOLAIR [Suspect]
     Active Substance: OMALIZUMAB
     Route: 058
     Dates: start: 20150520
  3. XOLAIR [Suspect]
     Active Substance: OMALIZUMAB
     Route: 058
     Dates: start: 20150715
  4. XOLAIR [Suspect]
     Active Substance: OMALIZUMAB
     Route: 058
     Dates: start: 20150729
  5. VENTOLIN [Concomitant]
     Active Substance: ALBUTEROL SULFATE
  6. PREDNISONE. [Concomitant]
     Active Substance: PREDNISONE
     Route: 065
  7. XOLAIR [Suspect]
     Active Substance: OMALIZUMAB
     Indication: ASTHMA
     Route: 058
     Dates: start: 20150326
  8. XOLAIR [Suspect]
     Active Substance: OMALIZUMAB
     Route: 058
     Dates: start: 20150923
  9. PREDNISONE. [Concomitant]
     Active Substance: PREDNISONE
     Route: 065
     Dates: start: 201505
  10. HYDROCORTISONE. [Concomitant]
     Active Substance: HYDROCORTISONE

REACTIONS (11)
  - Asthma [Unknown]
  - Nausea [Not Recovered/Not Resolved]
  - Pruritus [Not Recovered/Not Resolved]
  - Lung infection [Unknown]
  - Ligament rupture [Unknown]
  - Malaise [Unknown]
  - Heart rate increased [Unknown]
  - Dysphagia [Unknown]
  - Rash [Unknown]
  - Diarrhoea [Unknown]
  - Lower respiratory tract infection [Unknown]

NARRATIVE: CASE EVENT DATE: 20150326
